FAERS Safety Report 5235509-4 (Version None)
Quarter: 2007Q1

REPORT INFORMATION
  Report Type: 
  Country: None (occurrence: None)
  Receive Date: 20070207
  Receipt Date: 20070207
  Transmission Date: 20070707
  Serious: Yes (Disabling)
  Sender: FDA-Public Use
  Company Number: None

PATIENT
  Sex: Female
  Weight: 77.1115 kg

DRUGS (1)
  1. TOPAMAX [Suspect]
     Indication: MIGRAINE
     Dosage: 1 TAB  ONCE A DAY
     Dates: start: 20070126, end: 20070204

REACTIONS (5)
  - DYSGEUSIA [None]
  - EYE PAIN [None]
  - IMPAIRED DRIVING ABILITY [None]
  - VISION BLURRED [None]
  - VISUAL ACUITY REDUCED [None]
